FAERS Safety Report 8607715-X (Version None)
Quarter: 2012Q3

REPORT INFORMATION
  Report Type: 
  Country: None (occurrence: None)
  Receive Date: 20120821
  Receipt Date: 20120815
  Transmission Date: 20120928
  Serious: Yes (Other)
  Sender: FDA-Public Use
  Company Number: CA-SANOFI-AVENTIS-2012SA042607

PATIENT
  Age: 83 Year
  Sex: Female

DRUGS (2)
  1. PLAVIX [Suspect]
     Route: 065
  2. LUCENTIS [Concomitant]
     Indication: AGE-RELATED MACULAR DEGENERATION
     Route: 031
     Dates: start: 20090101

REACTIONS (3)
  - INTESTINAL HAEMORRHAGE [None]
  - PNEUMONIA [None]
  - PULMONARY HAEMORRHAGE [None]
